FAERS Safety Report 12954859 (Version 4)
Quarter: 2017Q1

REPORT INFORMATION
  Report Type: Report from Study
  Country: US (occurrence: US)
  Receive Date: 20161118
  Receipt Date: 20170223
  Transmission Date: 20170428
  Serious: Yes (Other)
  Sender: FDA-Public Use
  Company Number: PHEH2016US029822

PATIENT
  Sex: Female

DRUGS (1)
  1. EXTAVIA [Suspect]
     Active Substance: INTERFERON BETA-1B
     Indication: MULTIPLE SCLEROSIS
     Dosage: QOD
     Route: 058

REACTIONS (4)
  - Mental impairment [Unknown]
  - Incorrect dose administered [Unknown]
  - Injection site pain [Unknown]
  - Device breakage [Unknown]
